FAERS Safety Report 8364627-7 (Version None)
Quarter: 2012Q2

REPORT INFORMATION
  Report Type: 
  Country: None (occurrence: None)
  Receive Date: 20120516
  Receipt Date: 20120510
  Transmission Date: 20120825
  Serious: No
  Sender: FDA-Public Use
  Company Number: US-AMGEN-USASP2012019848

PATIENT
  Age: 72 Year
  Sex: Male
  Weight: 95.238 kg

DRUGS (3)
  1. XGEVA [Suspect]
     Indication: PROSTATE CANCER METASTATIC
     Dosage: 120 MG, QMO
     Dates: start: 20110907, end: 20120228
  2. XGEVA [Suspect]
     Dosage: UNK
     Dates: start: 20120427
  3. PROVENGE [Concomitant]
     Indication: PROSTATE CANCER
     Dosage: UNK
     Route: 042
     Dates: start: 20110907, end: 20110907

REACTIONS (3)
  - PYREXIA [None]
  - UPPER RESPIRATORY TRACT INFECTION [None]
  - BACK PAIN [None]
